FAERS Safety Report 4770179-0 (Version None)
Quarter: 2005Q3

REPORT INFORMATION
  Report Type: 
  Country: None (occurrence: None)
  Receive Date: 20050915
  Receipt Date: 20050906
  Transmission Date: 20060218
  Serious: Yes (Hospitalization, Other)
  Sender: FDA-Public Use
  Company Number: PHBS2005CA13079

PATIENT
  Sex: Female

DRUGS (2)
  1. SENOKOT [Suspect]
  2. ZELNORM [Suspect]
     Dosage: 6 MG, UNK
     Route: 048

REACTIONS (10)
  - ABDOMINAL HERNIA [None]
  - ABDOMINAL HERNIA REPAIR [None]
  - ABDOMINAL PAIN [None]
  - CONSTIPATION [None]
  - FAECALOMA [None]
  - PAINFUL DEFAECATION [None]
  - PSYCHOTIC DISORDER [None]
  - SYNCOPE [None]
  - VISUAL DISTURBANCE [None]
  - VITREOUS FLOATERS [None]
